FAERS Safety Report 4334492-3 (Version None)
Quarter: 2004Q2

REPORT INFORMATION
  Report Type: 
  Country: None (occurrence: None)
  Receive Date: 20040407
  Receipt Date: 20031210
  Transmission Date: 20050107
  Serious: Yes (Death)
  Sender: FDA-Public Use
  Company Number: JP-GLAXOSMITHKLINE-B0317499A

PATIENT
  Age: 39 Year
  Sex: Male

DRUGS (9)
  1. PAROXETINE HCL [Suspect]
     Indication: DEPRESSION
     Dosage: 20MG PER DAY
     Route: 048
     Dates: start: 20031017, end: 20031126
  2. CEREKINON [Suspect]
     Indication: GASTRITIS
     Dosage: 300MG PER DAY
     Route: 048
     Dates: start: 20031017, end: 20031126
  3. LIMAS [Suspect]
     Indication: BIPOLAR I DISORDER
     Route: 048
     Dates: start: 19940808, end: 20031126
  4. ANAFRANIL [Suspect]
     Indication: BIPOLAR I DISORDER
     Dosage: 60MG PER DAY
     Route: 065
     Dates: end: 20031124
  5. LENDORM [Suspect]
     Indication: BIPOLAR I DISORDER
     Dosage: .25MG PER DAY
     Route: 048
     Dates: end: 20031126
  6. TRIAZOLAM [Suspect]
     Indication: BIPOLAR I DISORDER
     Dosage: .25MG PER DAY
     Route: 048
     Dates: start: 19930901, end: 20031126
  7. LOFEPRAMINE HYDROCHLORIDE [Suspect]
     Indication: BIPOLAR I DISORDER
     Dosage: 30MG PER DAY
     Route: 065
     Dates: start: 20031124, end: 20031126
  8. PROMETHAZINE HCL [Suspect]
     Indication: BIPOLAR I DISORDER
     Dosage: 75MG PER DAY
     Route: 048
     Dates: start: 20031124
  9. HAEMODIALYSIS [Concomitant]
     Dates: start: 20031126

REACTIONS (12)
  - ALANINE AMINOTRANSFERASE INCREASED [None]
  - ASPARTATE AMINOTRANSFERASE INCREASED [None]
  - BLOOD LACTATE DEHYDROGENASE INCREASED [None]
  - DRUG LEVEL BELOW THERAPEUTIC [None]
  - GAMMA-GLUTAMYLTRANSFERASE INCREASED [None]
  - HAEMODIALYSIS [None]
  - HAEMOGLOBIN DECREASED [None]
  - HEPATIC NECROSIS [None]
  - HEPATITIS FULMINANT [None]
  - INTERNATIONAL NORMALISED RATIO INCREASED [None]
  - RENAL FAILURE ACUTE [None]
  - WHITE BLOOD CELL COUNT DECREASED [None]
